FAERS Safety Report 5827221-5 (Version None)
Quarter: 2008Q3

REPORT INFORMATION
  Report Type: 
  Country: None (occurrence: None)
  Receive Date: 20080730
  Receipt Date: 20080724
  Transmission Date: 20090109
  Serious: Yes (Death)
  Sender: FDA-Public Use
  Company Number: GB-MERCK-0706GBR00074

PATIENT
  Age: 79 Year
  Sex: Male

DRUGS (8)
  1. ZETIA [Suspect]
     Indication: BLOOD CHOLESTEROL INCREASED
     Route: 048
     Dates: start: 20070326
  2. BECLOMETHASONE DIPROPIONATE [Concomitant]
     Dates: start: 20070306
  3. BISOPROLOL FUMARATE [Concomitant]
     Route: 048
     Dates: start: 20070129
  4. COZAAR [Concomitant]
     Route: 048
     Dates: start: 20070323
  5. ACETAMINOPHEN [Concomitant]
     Route: 065
     Dates: start: 20070402
  6. PRAZOSIN [Concomitant]
     Route: 048
     Dates: start: 20070323
  7. ALBUTEROL [Concomitant]
  8. SALMETEROL [Concomitant]
     Dates: start: 20070420

REACTIONS (5)
  - ARTERIOSCLEROSIS CORONARY ARTERY [None]
  - CHEST DISCOMFORT [None]
  - HYPERHIDROSIS [None]
  - MYOCARDIAL INFARCTION [None]
  - SYNCOPE [None]
